FAERS Safety Report 17629504 (Version 1)
Quarter: 2020Q2

REPORT INFORMATION
  Report Type: Spontaneous
  Country: US (occurrence: US)
  Receive Date: 20200406
  Receipt Date: 20200406
  Transmission Date: 20200713
  Serious: No
  Sender: FDA-Public Use
  Company Number: US-MYLANLABS-2020M1032293

PATIENT
  Sex: Female
  Weight: 50 kg

DRUGS (1)
  1. ESTRADIOL TRANSDERMAL SYSTEM [Suspect]
     Active Substance: ESTRADIOL
     Indication: PRODUCT USED FOR UNKNOWN INDICATION
     Dosage: 1 DOSAGE FORM
     Route: 062
     Dates: start: 2020

REACTIONS (4)
  - Drug ineffective [Unknown]
  - Night sweats [Unknown]
  - Breast pain [Unknown]
  - Headache [Unknown]

NARRATIVE: CASE EVENT DATE: 2020
